FAERS Safety Report 8206184-1 (Version None)
Quarter: 2012Q1

REPORT INFORMATION
  Report Type: 
  Country: None (occurrence: None)
  Receive Date: 20120313
  Receipt Date: 20120227
  Transmission Date: 20120608
  Serious: Yes (Hospitalization)
  Sender: FDA-Public Use
  Company Number: FR-ROCHE-1045042

PATIENT
  Sex: Male
  Weight: 86 kg

DRUGS (1)
  1. AVASTIN [Suspect]
     Indication: RECTAL CANCER
     Dosage: LAST DOSE PRIOR TO SAE: 28 SEP 2009
     Route: 042
     Dates: start: 20090506, end: 20090928

REACTIONS (1)
  - INTESTINAL ANASTOMOSIS COMPLICATION [None]
